FAERS Safety Report 25926990 (Version 1)
Quarter: 2025Q4

REPORT INFORMATION
  Report Type: Spontaneous
  Country: BR (occurrence: BR)
  Receive Date: 20251015
  Receipt Date: 20251015
  Transmission Date: 20260118
  Serious: Yes (Hospitalization)
  Sender: BIOMARIN
  Company Number: BR-BIOMARINAP-BR-2025-169353

PATIENT
  Age: 30 Year
  Sex: Female

DRUGS (2)
  1. VIMIZIM [Suspect]
     Active Substance: ELOSULFASE ALFA
     Indication: Mucopolysaccharidosis IV
     Dosage: UNK, QW
     Dates: start: 202406
  2. VIMIZIM [Suspect]
     Active Substance: ELOSULFASE ALFA
     Dosage: UNK, QW
     Dates: start: 20230531, end: 202311

REACTIONS (3)
  - Respiratory distress [Recovering/Resolving]
  - Respiratory symptom [Recovering/Resolving]
  - Bone deformity [Unknown]

NARRATIVE: CASE EVENT DATE: 20251001
